FAERS Safety Report 5637617-2 (Version None)
Quarter: 2008Q1

REPORT INFORMATION
  Report Type: 
  Country: None (occurrence: None)
  Receive Date: 20080225
  Receipt Date: 20080215
  Transmission Date: 20080703
  Serious: Yes (Hospitalization, Other)
  Sender: FDA-Public Use
  Company Number: CR-ABBOTT-08P-039-0435237-00

PATIENT
  Age: 55 Year
  Sex: Female

DRUGS (1)
  1. HUMIRA [Suspect]
     Indication: RHEUMATOID ARTHRITIS
     Dosage: 40MG/0.8ML
     Route: 058
     Dates: start: 20070101

REACTIONS (6)
  - COUGH [None]
  - DYSPNOEA [None]
  - ERYTHEMA NODOSUM [None]
  - PAIN [None]
  - PRURITUS [None]
  - TACHYPNOEA [None]
